FAERS Safety Report 4385386-9 (Version None)
Quarter: 2004Q2

REPORT INFORMATION
  Report Type: 
  Country: None (occurrence: None)
  Receive Date: 20040622
  Receipt Date: 20040608
  Transmission Date: 20050107
  Serious: Yes (Hospitalization)
  Sender: FDA-Public Use
  Company Number: 701850

PATIENT
  Age: 56 Year
  Sex: Female

DRUGS (2)
  1. AMEVIVE [Suspect]
     Indication: PSORIASIS
     Dosage: 15 MG QW IM
     Route: 030
     Dates: start: 20040217, end: 20040315
  2. AMEVIVE [Suspect]
     Indication: PSORIASIS
     Dosage: 15 MG QW IM
     Route: 030
     Dates: start: 20040322

REACTIONS (5)
  - CONFUSIONAL STATE [None]
  - FLUID INTAKE REDUCED [None]
  - IMPAIRED SELF-CARE [None]
  - KIDNEY INFECTION [None]
  - URINARY TRACT INFECTION [None]
